FAERS Safety Report 6636746-4 (Version None)
Quarter: 2010Q1

REPORT INFORMATION
  Report Type: 
  Country: None (occurrence: None)
  Receive Date: 20100226
  Receipt Date: 20090810
  Transmission Date: 20100710
  Serious: Yes (Other)
  Sender: FDA-Public Use
  Company Number: 287109

PATIENT
  Age: 18 Year
  Sex: Male
  Weight: 54.2 kg

DRUGS (2)
  1. NUTROPIN AQ [Suspect]
     Indication: GROWTH HORMONE DEFICIENCY
     Dosage: 2.5 MG, 7/WEEK, SUBCUTANEOUS
     Route: 058
     Dates: start: 20040624
  2. PREVACID [Concomitant]

REACTIONS (1)
  - INTRACRANIAL PRESSURE INCREASED [None]
